FAERS Safety Report 5763614-2 (Version None)
Quarter: 2008Q2

REPORT INFORMATION
  Report Type: 
  Country: None (occurrence: None)
  Receive Date: 20080610
  Receipt Date: 20080602
  Transmission Date: 20081010
  Serious: Yes (Hospitalization, Disabling, Other)
  Sender: FDA-Public Use
  Company Number: PHBS2007JP21201

PATIENT
  Age: 69 Year
  Sex: Male

DRUGS (4)
  1. DIOVAN [Suspect]
     Indication: HYPERTENSION
     Dosage: 80 MG/DAY
     Route: 048
     Dates: start: 20050201, end: 20071219
  2. DIGOXIN [Concomitant]
     Dosage: 0.125 MG/DAY
     Route: 048
     Dates: start: 19970101
  3. FLUITRAN [Concomitant]
     Dosage: 2 MG/DAY
     Route: 048
     Dates: start: 20000101
  4. STEROIDS NOS [Concomitant]

REACTIONS (10)
  - ALANINE AMINOTRANSFERASE INCREASED [None]
  - ANTIBODY TEST POSITIVE [None]
  - BLOOD ALKALINE PHOSPHATASE INCREASED [None]
  - BLOOD LACTATE DEHYDROGENASE INCREASED [None]
  - CELL MARKER INCREASED [None]
  - COMPLEMENT FACTOR [None]
  - DYSPNOEA [None]
  - GAMMA-GLUTAMYLTRANSFERASE INCREASED [None]
  - INTERSTITIAL LUNG DISEASE [None]
  - WHITE BLOOD CELL COUNT INCREASED [None]
